FAERS Safety Report 16297162 (Version 1)
Quarter: 2019Q2

REPORT INFORMATION
  Report Type: Spontaneous
  Country: US (occurrence: US)
  Receive Date: 20190510
  Receipt Date: 20190510
  Transmission Date: 20190711
  Serious: Yes (Other)
  Sender: FDA-Public Use
  Company Number: US-MYLANLABS-2019M1043832

PATIENT
  Sex: Male

DRUGS (4)
  1. SUNITINIB [Suspect]
     Active Substance: SUNITINIB
     Indication: GASTROINTESTINAL STROMAL TUMOUR
     Route: 065
  2. NILOTINIB [Suspect]
     Active Substance: NILOTINIB
     Indication: GASTROINTESTINAL STROMAL TUMOUR
     Route: 065
  3. REGORAFENIB. [Suspect]
     Active Substance: REGORAFENIB
     Indication: GASTROINTESTINAL STROMAL TUMOUR
     Route: 065
  4. IMATINIB. [Suspect]
     Active Substance: IMATINIB MESYLATE
     Indication: GASTROINTESTINAL STROMAL TUMOUR
     Route: 065

REACTIONS (4)
  - Malignant neoplasm progression [Unknown]
  - Facial paresis [Unknown]
  - Gait apraxia [Unknown]
  - Acoustic neuroma [Unknown]
